FAERS Safety Report 9374556 (Version 3)
Quarter: 2013Q4

REPORT INFORMATION
  Report Type: Spontaneous
  Country: US (occurrence: US)
  Receive Date: 20130628
  Receipt Date: 20131206
  Transmission Date: 20140711
  Serious: Yes (Death)
  Sender: FDA-Public Use
  Company Number: US-009507513-1306USA013272

PATIENT
  Age: 82 Year
  Sex: Female

DRUGS (1)
  1. TEMODAR [Suspect]
     Indication: GLIOBLASTOMA MULTIFORME
     Dosage: TOTAL TAILY DOSE: 100 MG
     Route: 048
     Dates: start: 20130410, end: 20130624

REACTIONS (1)
  - Brain neoplasm [Fatal]
